FAERS Safety Report 8412690-7 (Version None)
Quarter: 2012Q2

REPORT INFORMATION
  Report Type: 
  Country: None (occurrence: None)
  Receive Date: 20120605
  Receipt Date: 20120522
  Transmission Date: 20120825
  Serious: Yes (Hospitalization, Other)
  Sender: FDA-Public Use
  Company Number: US-AMGEN-USASP2012032019

PATIENT
  Sex: Female

DRUGS (15)
  1. CLONAZEPAM [Concomitant]
     Dosage: UNK
  2. CYMBALTA [Concomitant]
     Dosage: UNK
  3. CARAFATE [Concomitant]
     Dosage: UNK
  4. ENBREL [Suspect]
     Indication: PSORIATIC ARTHROPATHY
     Dosage: UNK
  5. FAMOTIDINE [Concomitant]
     Dosage: UNK
  6. LORATADINE [Concomitant]
     Dosage: UNK
  7. METHOTREXATE [Concomitant]
     Dosage: UNK
  8. IBUPROFEN [Concomitant]
     Dosage: UNK
  9. LORAZEPAM [Concomitant]
     Dosage: UNK
  10. NEXIUM [Concomitant]
     Dosage: UNK
  11. FOLIC ACID [Concomitant]
     Dosage: UNK
  12. TOPAMAX [Concomitant]
     Dosage: UNK
  13. NORCO [Concomitant]
     Dosage: UNK
  14. REQUIP [Concomitant]
     Dosage: UNK
  15. GABAPENTIN [Concomitant]
     Dosage: UNK

REACTIONS (1)
  - CONVULSION [None]
